FAERS Safety Report 21253319 (Version 3)
Quarter: 2022Q4

REPORT INFORMATION
  Report Type: Report from Study
  Country: US (occurrence: None)
  Receive Date: 20220825
  Receipt Date: 20221110
  Transmission Date: 20230112
  Serious: Yes (Other)
  Sender: FDA-Public Use
  Company Number: US-Merck Healthcare KGaA-9286252

PATIENT
  Age: 55 Year
  Sex: Female

DRUGS (8)
  1. MAVENCLAD [Suspect]
     Active Substance: CLADRIBINE
     Indication: Secondary progressive multiple sclerosis
     Dosage: YEAR ONE MONTH ONE THERAPY
     Route: 048
     Dates: start: 20210919
  2. MAVENCLAD [Suspect]
     Active Substance: CLADRIBINE
     Dosage: YEAR ONE MONTH TWO THERAPY
     Route: 048
     Dates: start: 20211017
  3. MAVENCLAD [Suspect]
     Active Substance: CLADRIBINE
     Dosage: YEAR TWO MONTH ONE THERAPY
     Route: 048
     Dates: start: 20221006
  4. WELLBUTRIN [Concomitant]
     Active Substance: BUPROPION HYDROCHLORIDE
     Indication: Depression
  5. BOTOX [Concomitant]
     Active Substance: ONABOTULINUMTOXINA
     Indication: Bladder disorder
  6. AMITRIPTYLINE [Concomitant]
     Active Substance: AMITRIPTYLINE
     Indication: Back pain
  7. LEVODOPA [Concomitant]
     Active Substance: LEVODOPA
     Indication: Muscle spasticity
  8. CARBIDOPA [Concomitant]
     Active Substance: CARBIDOPA
     Indication: Muscle spasticity

REACTIONS (16)
  - Neurogenic bladder [Not Recovered/Not Resolved]
  - Condition aggravated [Not Recovered/Not Resolved]
  - White blood cell count decreased [Recovering/Resolving]
  - Urinary tract infection bacterial [Recovering/Resolving]
  - Lymphocyte count decreased [Not Recovered/Not Resolved]
  - Fall [Unknown]
  - Asthenia [Recovering/Resolving]
  - Fatigue [Recovering/Resolving]
  - Mobility decreased [Unknown]
  - Back pain [Unknown]
  - Restless legs syndrome [Unknown]
  - Muscle spasticity [Unknown]
  - Arthropathy [Not Recovered/Not Resolved]
  - Crying [Unknown]
  - General physical health deterioration [Unknown]
  - Insomnia [Unknown]

NARRATIVE: CASE EVENT DATE: 20210101
